FAERS Safety Report 9611521 (Version 3)
Quarter: 2014Q2

REPORT INFORMATION
  Report Type: Report from Study
  Country: BR (occurrence: BR)
  Receive Date: 20131010
  Receipt Date: 20140505
  Transmission Date: 20141212
  Serious: Yes (Other)
  Sender: FDA-Public Use
  Company Number: BR-AMGEN-BRACT2011052118

PATIENT
  Age: 80 Year
  Sex: Female
  Weight: 42 kg

DRUGS (10)
  1. ETANERCEPT [Suspect]
     Indication: RHEUMATOID ARTHRITIS
     Dosage: 50 MG, QWK
     Route: 058
     Dates: start: 2009, end: 2012
  2. ETANERCEPT [Suspect]
     Dosage: 50 MG, WEEKLY
     Route: 058
  3. EUTHYROX [Concomitant]
     Dosage: STRENGTH 50 UG
  4. ANCORON [Concomitant]
     Dosage: STRENGTH 100 MG
  5. ENSURE                             /07421001/ [Concomitant]
     Dosage: UNK
     Route: 065
  6. OSTEONUTRI [Concomitant]
     Dosage: UNK
     Route: 065
  7. KETOPROFEN [Concomitant]
     Dosage: STRENGTH 100 MG
     Route: 065
  8. FAMOTIDINE [Concomitant]
     Dosage: STRENGTH 40 MG
  9. TRAMADOL [Concomitant]
     Dosage: STRENGTH 40 MG
  10. ZIPROL [Concomitant]
     Dosage: STRENGTH 40 MG

REACTIONS (4)
  - Diarrhoea [Not Recovered/Not Resolved]
  - Injection site erythema [Unknown]
  - Hypertension [Unknown]
  - Peripheral swelling [Unknown]
